FAERS Safety Report 5289407-0 (Version None)
Quarter: 2007Q2

REPORT INFORMATION
  Report Type: 
  Country: None (occurrence: None)
  Receive Date: 20070406
  Receipt Date: 20070323
  Transmission Date: 20071010
  Serious: Yes (Hospitalization)
  Sender: FDA-Public Use
  Company Number: PHBS2007TW05325

PATIENT
  Age: 60 Year
  Sex: Female

DRUGS (6)
  1. VALSARTAN [Suspect]
     Dosage: 80 MG/DAY
  2. VALPROATE SODIUM [Concomitant]
     Dosage: 1500 MG/DAY
  3. VALPROATE SODIUM [Concomitant]
     Dosage: 1000 MG/DAY
  4. LITHIUM CARBONATE [Suspect]
     Dosage: 600 MG/DAY
  5. CLONAZEPAM [Concomitant]
     Dosage: 2 MG/DAY
  6. RISPERDAL [Concomitant]

REACTIONS (16)
  - AZOTAEMIA [None]
  - BLOOD CREATININE INCREASED [None]
  - BLOOD POTASSIUM INCREASED [None]
  - BLOOD SODIUM INCREASED [None]
  - BLOOD UREA INCREASED [None]
  - COORDINATION ABNORMAL [None]
  - DEHYDRATION [None]
  - DRUG INTERACTION [None]
  - DRUG LEVEL INCREASED [None]
  - FALL [None]
  - GAIT DISTURBANCE [None]
  - MOVEMENT DISORDER [None]
  - MUSCLE RIGIDITY [None]
  - RENAL FAILURE [None]
  - THERAPEUTIC AGENT TOXICITY [None]
  - TREMOR [None]
